FAERS Safety Report 7079248-6 (Version None)
Quarter: 2010Q4

REPORT INFORMATION
  Report Type: 
  Country: None (occurrence: None)
  Receive Date: 20101102
  Receipt Date: 20101025
  Transmission Date: 20110411
  Serious: Yes (Other)
  Sender: FDA-Public Use
  Company Number: GXKR2010GB12035

PATIENT
  Sex: Female

DRUGS (1)
  1. RISPERIDONE [Suspect]
     Dosage: UNK
     Route: 065

REACTIONS (3)
  - CONFUSIONAL STATE [None]
  - INCONTINENCE [None]
  - STRESS [None]
